FAERS Safety Report 8973176 (Version 2)
Quarter: 2013Q4

REPORT INFORMATION
  Report Type: Report from Study
  Country: FR (occurrence: FR)
  Receive Date: 20121218
  Receipt Date: 20131223
  Transmission Date: 20140711
  Serious: Yes (Hospitalization)
  Sender: FDA-Public Use
  Company Number: FR-VERTEX PHARMACEUTICALS INC.-2012-026340

PATIENT
  Age: 57 Year
  Sex: Male
  Weight: 80 kg

DRUGS (13)
  1. VX-950 (TELAPREVIR) [Suspect]
     Indication: HEPATITIS C
     Dosage: 750 MG, TID
     Route: 048
     Dates: start: 20110325, end: 20110625
  2. COPEGUS [Suspect]
     Indication: HEPATITIS C
     Dosage: 800 MG, BID
     Route: 048
     Dates: start: 20110325, end: 201203
  3. PEGASYS [Suspect]
     Indication: HEPATITIS C
     Dosage: 180 ?G, QW
     Route: 058
     Dates: start: 20110325, end: 201203
  4. NEORECORMON [Concomitant]
     Indication: ANAEMIA
  5. NEORECORMON [Concomitant]
     Dates: start: 20110523
  6. TITANOREINE (NOS) [Concomitant]
     Indication: HAEMORRHOIDS
     Dates: start: 20110411, end: 20110511
  7. EFFEXOR [Concomitant]
     Indication: DEPRESSION
     Dates: start: 20110427
  8. XANAX [Concomitant]
     Indication: ANXIETY
     Dates: start: 20110427
  9. GINKOR [Concomitant]
     Indication: HAEMORRHOIDS
     Dates: start: 20110427, end: 20110427
  10. ATARAX [Concomitant]
     Indication: RASH
     Dates: start: 20110506, end: 20110606
  11. FLIXOVATE [Concomitant]
     Indication: RASH
     Dosage: DOSAGE FORM: CREAM
     Dates: start: 20110506, end: 20110606
  12. KESTIN [Concomitant]
     Indication: RASH
     Dates: start: 20110506, end: 20110606
  13. PREDNISONE [Concomitant]
     Indication: HAEMORRHOIDS
     Dates: start: 20110427, end: 20110511

REACTIONS (4)
  - Dyspnoea [Recovered/Resolved]
  - Lymphopenia [Unknown]
  - Anaemia [Recovered/Resolved]
  - Drug eruption [Unknown]
